FAERS Safety Report 6048508-X (Version None)
Quarter: 2009Q1

REPORT INFORMATION
  Report Type: 
  Country: None (occurrence: None)
  Receive Date: 20090123
  Receipt Date: 20090119
  Transmission Date: 20090719
  Serious: Yes (Other)
  Sender: FDA-Public Use
  Company Number: B0555119A

PATIENT
  Age: 74 Year
  Sex: Female

DRUGS (11)
  1. AUGMENTIN '125' [Suspect]
     Dosage: 1G THREE TIMES PER DAY
     Route: 048
  2. AMOXICILLIN [Suspect]
     Route: 048
     Dates: start: 20081028, end: 20081030
  3. LOVENOX [Concomitant]
  4. COAPROVEL [Concomitant]
  5. BEFIZAL [Concomitant]
  6. VITAMINE B12 [Concomitant]
  7. UNICORDIUM [Concomitant]
  8. CACIT VITAMINE D3 [Concomitant]
  9. MOPRAL [Concomitant]
  10. ALDACTONE [Concomitant]
  11. ALLOPURINOL [Concomitant]

REACTIONS (2)
  - ANAEMIA [None]
  - NEUTROPENIA [None]
